FAERS Safety Report 7604363-5 (Version None)
Quarter: 2011Q3

REPORT INFORMATION
  Report Type: 
  Country: None (occurrence: None)
  Receive Date: 20110712
  Receipt Date: 20110701
  Transmission Date: 20111222
  Serious: Yes (Hospitalization)
  Sender: FDA-Public Use
  Company Number: CL-MEDIMMUNE-MEDI-0013321

PATIENT
  Sex: Female
  Weight: 5 kg

DRUGS (1)
  1. SYNAGIS [Suspect]
     Route: 030
     Dates: start: 20110524, end: 20110524

REACTIONS (2)
  - RESPIRATORY DISORDER [None]
  - ADENOVIRUS INFECTION [None]
